FAERS Safety Report 10918941 (Version 1)
Quarter: 2015Q1

REPORT INFORMATION
  Report Type: Spontaneous
  Country: US (occurrence: US)
  Receive Date: 20150316
  Receipt Date: 20150316
  Transmission Date: 20150721
  Serious: No
  Sender: FDA-Public Use
  Company Number: US-ASTRAZENECA-2015SE21754

PATIENT
  Sex: Male

DRUGS (2)
  1. SYMBICORT [Suspect]
     Active Substance: BUDESONIDE\FORMOTEROL FUMARATE DIHYDRATE
     Indication: PULMONARY CONGESTION
     Dosage: TWO TIMES A DAY
     Route: 055
     Dates: end: 201502
  2. SYMBICORT [Suspect]
     Active Substance: BUDESONIDE\FORMOTEROL FUMARATE DIHYDRATE
     Indication: DYSPNOEA
     Dosage: TWO TIMES A DAY
     Route: 055
     Dates: end: 201502

REACTIONS (8)
  - Injury [Unknown]
  - Vomiting [Unknown]
  - Weight decreased [Unknown]
  - Hypophagia [Unknown]
  - Anhedonia [Unknown]
  - Nausea [Unknown]
  - Dizziness [Unknown]
  - Intentional product misuse [Unknown]
